FAERS Safety Report 7750061-7 (Version None)
Quarter: 2011Q3

REPORT INFORMATION
  Report Type: 
  Country: None (occurrence: None)
  Receive Date: 20110912
  Receipt Date: 20110906
  Transmission Date: 20111222
  Serious: Yes (Other)
  Sender: FDA-Public Use
  Company Number: 2007-153385-NL

PATIENT
  Age: 24 Year
  Sex: Female
  Weight: 48 kg

DRUGS (2)
  1. IMPLANON [Suspect]
     Indication: PRODUCT USED FOR UNKNOWN INDICATION
     Dosage: 1 DF;
     Dates: start: 20060105
  2. ZYRTEC [Concomitant]

REACTIONS (6)
  - ADNEXA UTERI PAIN [None]
  - OVARIAN CYST [None]
  - DRUG LEVEL DECREASED [None]
  - PELVIC PAIN [None]
  - BREAST DISCOMFORT [None]
  - COMPLICATION OF DEVICE REMOVAL [None]
